FAERS Safety Report 21715958 (Version 1)
Quarter: 2022Q4

REPORT INFORMATION
  Report Type: Spontaneous
  Country: US (occurrence: None)
  Receive Date: 20221210
  Receipt Date: 20221210
  Transmission Date: 20230113
  Serious: Yes (Hospitalization)
  Sender: FDA-Public Use
  Company Number: None

PATIENT
  Age: 16 Year
  Sex: Female
  Weight: 34.9 kg

DRUGS (5)
  1. CYTARABINE [Suspect]
     Active Substance: CYTARABINE
     Dates: end: 20220731
  2. DAUNORUBICIN [Suspect]
     Active Substance: DAUNORUBICIN
     Dates: end: 20220727
  3. ZINECARD [Suspect]
     Active Substance: DEXRAZOXANE HYDROCHLORIDE
     Dates: end: 20220727
  4. HYDROCORTISONE [Suspect]
     Active Substance: HYDROCORTISONE
     Dates: end: 20220727
  5. METHOTREXATE [Suspect]
     Active Substance: METHOTREXATE
     Dates: end: 20220727

REACTIONS (7)
  - Hypotension [None]
  - Heart rate increased [None]
  - Depressed level of consciousness [None]
  - Pyrexia [None]
  - Chest pain [None]
  - Headache [None]
  - Therapy interrupted [None]

NARRATIVE: CASE EVENT DATE: 20220731
